FAERS Safety Report 12212825 (Version 1)
Quarter: 2016Q1

REPORT INFORMATION
  Report Type: Other
  Country: PL (occurrence: PL)
  Receive Date: 20160328
  Receipt Date: 20160328
  Transmission Date: 20160526
  Serious: Yes (Hospitalization)
  Sender: FDA-Public Use
  Company Number: PL-LUPIN PHARMACEUTICALS INC.-2016-00992

PATIENT
  Age: 50 Year
  Sex: Female

DRUGS (1)
  1. ETHINYLESTRADIOL + DESOGESTREL [Suspect]
     Active Substance: DESOGESTREL\ETHINYL ESTRADIOL
     Indication: ORAL CONTRACEPTION
     Dosage: 0.02MG/0.15MG
     Route: 048

REACTIONS (1)
  - Pulmonary embolism [Recovering/Resolving]
